FAERS Safety Report 9563964 (Version 1)
Quarter: 2013Q3

REPORT INFORMATION
  Report Type: Report from Study
  Country: GT (occurrence: GT)
  Receive Date: 20130928
  Receipt Date: 20130928
  Transmission Date: 20140515
  Serious: Yes (Death)
  Sender: FDA-Public Use
  Company Number: GT-ROCHE-1282496

PATIENT
  Age: 61 Year
  Sex: Female

DRUGS (1)
  1. BONVIVA [Suspect]
     Indication: OSTEOPOROSIS
     Route: 048
     Dates: start: 20081202

REACTIONS (1)
  - Death [Fatal]
